FAERS Safety Report 15280804 (Version 2)
Quarter: 2018Q3

REPORT INFORMATION
  Report Type: Spontaneous
  Country: GR (occurrence: GR)
  Receive Date: 20180815
  Receipt Date: 20180823
  Transmission Date: 20181010
  Serious: Yes (Death, Hospitalization, Other)
  Sender: FDA-Public Use
  Company Number: PHHY2017GR204534

PATIENT
  Age: 60 Year
  Sex: Female
  Weight: 54 kg

DRUGS (24)
  1. DEXAMETHASONE. [Suspect]
     Active Substance: DEXAMETHASONE
     Indication: PLASMA CELL MYELOMA
     Dosage: 40 MG, QD (ON DAYS 1,2,3 AND 4. 218 DAYS DURATION)
     Route: 048
     Dates: start: 20160604, end: 20170108
  2. CYCLOPHOSPHAMIDE. [Suspect]
     Active Substance: CYCLOPHOSPHAMIDE
     Indication: PLASMA CELL MYELOMA
     Dosage: 500 MG, QD (ON DAYS 1,2,3 AND 4. 141 DAYS DURATION)
     Route: 042
     Dates: start: 20170724, end: 20171212
  3. CARBOPLATIN. [Suspect]
     Active Substance: CARBOPLATIN
     Indication: PLASMA CELL MYELOMA
     Dosage: 30 MG, QD (ON DAYS 1,2,3 AND 4)
     Route: 042
     Dates: start: 20160604
  4. VELCADE [Suspect]
     Active Substance: BORTEZOMIB
     Indication: PLASMA CELL MYELOMA
     Dosage: 2 MG, QD (LYOPHILIZED POWDER ON DAYS 1,4,8 AND 11 WITH ONE WEEK OFF. 218 DURATION)
     Route: 058
  5. VELCADE [Suspect]
     Active Substance: BORTEZOMIB
     Dosage: 2 MG, QD (LYOPHILIZED POWDER)
     Route: 058
  6. VELCADE [Suspect]
     Active Substance: BORTEZOMIB
     Dosage: 2 MG, CYCLIC (LYOPHILIZED POWDER ON DAYS 1,8,15 WITH 1 WEEK OFF EVERY 28 DAY CYCLE))
     Route: 058
     Dates: start: 20170310, end: 20170413
  7. FILGRASTIM [Concomitant]
     Active Substance: FILGRASTIM
     Indication: PRODUCT USED FOR UNKNOWN INDICATION
     Dosage: UNK
     Route: 065
  8. DEXAMETHASONE. [Suspect]
     Active Substance: DEXAMETHASONE
     Dosage: 20 MG, QD
     Route: 048
  9. ADRIBLASTINA [Suspect]
     Active Substance: DOXORUBICIN HYDROCHLORIDE
     Indication: PLASMA CELL MYELOMA
     Dosage: 15 MG, QD (ON DAYS 1,2,3 AND 4)
     Route: 042
     Dates: start: 20160604
  10. HEPARIN [Concomitant]
     Active Substance: HEPARIN SODIUM
     Indication: PRODUCT USED FOR UNKNOWN INDICATION
     Dosage: UNK
     Route: 065
  11. ZOLEDRONIC ACID [Concomitant]
     Active Substance: ZOLEDRONIC ACID
     Indication: PRODUCT USED FOR UNKNOWN INDICATION
     Dosage: UNK
     Route: 065
  12. DEXAMETHASONE. [Suspect]
     Active Substance: DEXAMETHASONE
     Dosage: 20 MG, QD
     Route: 042
  13. CYCLOPHOSPHAMIDE. [Suspect]
     Active Substance: CYCLOPHOSPHAMIDE
     Dosage: 500 MG, QD ( ON DAYS 1,2,3 AND 4. 218 DURATION)
     Route: 042
     Dates: start: 20160604, end: 20170108
  14. THALIDOMIDE [Suspect]
     Active Substance: THALIDOMIDE
     Indication: PLASMA CELL MYELOMA
     Dosage: 100 MG, QD (21 DAYS ON AND 7 DAYS OFF)
     Route: 048
     Dates: start: 20160604
  15. EPOETIN ALFA [Concomitant]
     Active Substance: ERYTHROPOIETIN
     Indication: PRODUCT USED FOR UNKNOWN INDICATION
     Dosage: DOSAGE FORM: UNSPECIFIED
     Route: 065
  16. DEXAMETHASONE. [Suspect]
     Active Substance: DEXAMETHASONE
     Dosage: 32 MG, QD
     Route: 048
  17. LENALIDOMIDE [Suspect]
     Active Substance: LENALIDOMIDE
     Indication: PLASMA CELL MYELOMA
     Dosage: 25 MG, QD
     Route: 048
     Dates: start: 20170310, end: 20170316
  18. LENALIDOMIDE [Suspect]
     Active Substance: LENALIDOMIDE
     Dosage: 25 MG, QD
     Route: 048
  19. VELCADE [Suspect]
     Active Substance: BORTEZOMIB
     Dosage: 4.2 MG, QW (LYOPHILIZED POWDER, ON DAYS 1,4,8 AND 11 WITH ONE WEEK OFF)
     Route: 058
     Dates: start: 20170724, end: 20180111
  20. POMALIDOMIDE [Suspect]
     Active Substance: POMALIDOMIDE
     Indication: PLASMA CELL MYELOMA
     Dosage: 4 MG, QD
     Route: 048
  21. DARATUMUMAB [Suspect]
     Active Substance: DARATUMUMAB
     Indication: PLASMA CELL MYELOMA
     Dosage: 16 MG/KG, QD
     Route: 042
  22. VELCADE [Suspect]
     Active Substance: BORTEZOMIB
     Dosage: 1.5 MG, QD (LYOPHILIZED POWDER)
     Route: 058
  23. ETOPOSIDE. [Suspect]
     Active Substance: ETOPOSIDE
     Indication: PLASMA CELL MYELOMA
     Dosage: 50 MG, QD (ON DAYS 1,2,3 AND 4)
     Route: 048
     Dates: start: 20160604
  24. ASPIRIN. [Concomitant]
     Active Substance: ASPIRIN
     Indication: PRODUCT USED FOR UNKNOWN INDICATION
     Dosage: DOSAGE FORM: UNSPECIFIED
     Route: 065

REACTIONS (10)
  - Urinary tract infection [Recovered/Resolved]
  - Febrile neutropenia [Recovered/Resolved]
  - Urinary tract infection bacterial [Recovered/Resolved]
  - Off label use [Recovered/Resolved]
  - Respiratory tract infection [Recovered/Resolved]
  - Viral infection [Recovered/Resolved]
  - Sinus tachycardia [Not Recovered/Not Resolved]
  - Pancytopenia [Not Recovered/Not Resolved]
  - Acute kidney injury [Fatal]
  - Thrombocytopenia [Recovered/Resolved]

NARRATIVE: CASE EVENT DATE: 20160604
